FAERS Safety Report 25942691 (Version 1)
Quarter: 2025Q4

REPORT INFORMATION
  Report Type: Spontaneous
  Country: KR (occurrence: KR)
  Receive Date: 20251021
  Receipt Date: 20251021
  Transmission Date: 20260117
  Serious: Yes (Disabling, Other)
  Sender: Kenvue
  Company Number: KR-KENVUE-20251006334

PATIENT

DRUGS (2)
  1. TYLENOL 8HR [Suspect]
     Active Substance: ACETAMINOPHEN
     Indication: Pyrexia
     Dosage: 2 DOSAGE FORM, FOUR TIME A DAY (2{DF} / 0.25DAY)
     Route: 065
     Dates: start: 20230525, end: 20230525
  2. ACETAMINOPHEN [Suspect]
     Active Substance: ACETAMINOPHEN
     Indication: Pyrexia
     Dosage: 1 DOSAGE FORM, 0.5 TIMES A DAY
     Route: 065
     Dates: start: 20230525, end: 20230525

REACTIONS (1)
  - Drug-induced liver injury [Recovered/Resolved]

NARRATIVE: CASE EVENT DATE: 20230525
